FAERS Safety Report 11337841 (Version 2)
Quarter: 2015Q3

REPORT INFORMATION
  Report Type: Spontaneous
  Country: US (occurrence: US)
  Receive Date: 20150803
  Receipt Date: 20150903
  Transmission Date: 20151125
  Serious: No
  Sender: FDA-Public Use
  Company Number: US-ELI_LILLY_AND_COMPANY-US201001005782

PATIENT
  Sex: Female

DRUGS (22)
  1. DIVALPROEX [Concomitant]
     Active Substance: DIVALPROEX SODIUM
  2. LACTULOSE. [Concomitant]
     Active Substance: LACTULOSE
  3. METFORMIN [Concomitant]
     Active Substance: METFORMIN HYDROCHLORIDE
  4. LANTUS [Concomitant]
     Active Substance: INSULIN GLARGINE
  5. SYNTHROID [Concomitant]
     Active Substance: LEVOTHYROXINE SODIUM
  6. AMANTADINE [Concomitant]
     Active Substance: AMANTADINE
  7. SENOKOT [Concomitant]
     Active Substance: SENNOSIDES
  8. VITAMIN D3 [Concomitant]
     Active Substance: CHOLECALCIFEROL
  9. CALCIUM [Concomitant]
     Active Substance: CALCIUM
  10. DOCUSATE [Concomitant]
     Active Substance: DOCUSATE
  11. GLYBURIDE. [Concomitant]
     Active Substance: GLYBURIDE
  12. MILK OF MAGNESIA [Concomitant]
     Active Substance: MAGNESIUM HYDROXIDE
  13. REFRESH TEAR [Concomitant]
  14. ZYPREXA [Suspect]
     Active Substance: OLANZAPINE
     Indication: SCHIZOPHRENIA
     Dosage: 7.5 MG, DAILY (1/D)
     Dates: start: 1995
  15. CRANBERRY. [Concomitant]
     Active Substance: CRANBERRY
  16. TRICOR [Concomitant]
     Active Substance: FENOFIBRATE
  17. ACETAMINOPHEN. [Concomitant]
     Active Substance: ACETAMINOPHEN
  18. OMEPRAZOLE. [Concomitant]
     Active Substance: OMEPRAZOLE
  19. HUMALOG [Suspect]
     Active Substance: INSULIN LISPRO
  20. BISACODYL. [Concomitant]
     Active Substance: BISACODYL
  21. SIMVASTATIN. [Concomitant]
     Active Substance: SIMVASTATIN
  22. TRIMETHOPRIM. [Concomitant]
     Active Substance: TRIMETHOPRIM

REACTIONS (5)
  - Blood glucose increased [Not Recovered/Not Resolved]
  - Glycosylated haemoglobin increased [Not Recovered/Not Resolved]
  - Blood triglycerides increased [Not Recovered/Not Resolved]
  - Diabetes mellitus [Not Recovered/Not Resolved]
  - Aphasia [Not Recovered/Not Resolved]

NARRATIVE: CASE EVENT DATE: 2007
